FAERS Safety Report 21628411 (Version 2)
Quarter: 2022Q4

REPORT INFORMATION
  Report Type: Report from Study
  Country: US (occurrence: US)
  Receive Date: 20221122
  Receipt Date: 20221227
  Transmission Date: 20230112
  Serious: No
  Sender: FDA-Public Use
  Company Number: US-ABBVIE-22K-163-4494424-00

PATIENT
  Sex: Female

DRUGS (6)
  1. HUMIRA [Suspect]
     Active Substance: ADALIMUMAB
     Indication: Psoriatic arthropathy
     Dosage: CITRATE FREE?STRENGTH: 40  MILLIGRAM
     Route: 058
     Dates: start: 20210604
  2. HUMIRA [Suspect]
     Active Substance: ADALIMUMAB
     Dosage: CITRATE FREE?STRENGTH: 40  MILLIGRAM, DISCONTINUED IN 2021
     Route: 058
     Dates: start: 20210104
  3. MODERNA COVID-19 VACCINE [Suspect]
     Active Substance: ELASOMERAN
     Indication: COVID-19 immunisation
     Dosage: 1 IN ONCE
     Route: 030
     Dates: start: 20201228, end: 20201228
  4. MODERNA COVID-19 VACCINE [Suspect]
     Active Substance: ELASOMERAN
     Indication: COVID-19 immunisation
     Dosage: 2ND DOSE ?1 IN ONCE
     Route: 030
     Dates: start: 20210128, end: 20210128
  5. PFIZER-BIONTECH COVID-19 VACCINE [Concomitant]
     Active Substance: TOZINAMERAN
     Indication: COVID-19 immunisation
     Dosage: 1 IN ONCE?1ST DOSE
     Route: 030
     Dates: start: 20201201, end: 20201201
  6. PFIZER-BIONTECH COVID-19 VACCINE [Concomitant]
     Active Substance: TOZINAMERAN
     Indication: COVID-19 immunisation
     Dosage: 1 IN ONCE?2ND DOSE
     Route: 030
     Dates: start: 20210201, end: 20210201

REACTIONS (12)
  - Fatigue [Unknown]
  - Alcohol intolerance [Not Recovered/Not Resolved]
  - Malaise [Unknown]
  - Joint effusion [Not Recovered/Not Resolved]
  - Psoriatic arthropathy [Not Recovered/Not Resolved]
  - Lyme disease [Not Recovered/Not Resolved]
  - Chills [Unknown]
  - Feeling of body temperature change [Unknown]
  - Pyrexia [Unknown]
  - Eye disorder [Not Recovered/Not Resolved]
  - Breast mass [Unknown]
  - Weight increased [Unknown]
